FAERS Safety Report 12275853 (Version 1)
Quarter: 2016Q2

REPORT INFORMATION
  Report Type: Spontaneous
  Country: US (occurrence: US)
  Receive Date: 20160418
  Receipt Date: 20160418
  Transmission Date: 20160815
  Serious: No
  Sender: FDA-Public Use
  Company Number: US-009507513-1603USA009917

PATIENT
  Sex: Female

DRUGS (2)
  1. FOLLITROPIN BETA [Suspect]
     Active Substance: FOLLITROPIN
     Indication: PRODUCT USED FOR UNKNOWN INDICATION
     Dosage: UNK
     Dates: start: 20160318
  2. FOLLISTIM [Suspect]
     Active Substance: FOLLITROPIN
     Dosage: 450 IU, BID
     Route: 058
     Dates: start: 20160318

REACTIONS (2)
  - Injection site discolouration [Not Recovered/Not Resolved]
  - Product quality issue [Unknown]

NARRATIVE: CASE EVENT DATE: 201603
